FAERS Safety Report 25022917 (Version 1)
Quarter: 2025Q1

REPORT INFORMATION
  Report Type: Spontaneous
  Country: US (occurrence: None)
  Receive Date: 20250227
  Receipt Date: 20250227
  Transmission Date: 20250409
  Serious: Yes (Death)
  Sender: FDA-CTU
  Company Number: None

PATIENT
  Age: 75 Year
  Sex: Male
  Weight: 84.17 kg

DRUGS (12)
  1. MYCOPHENOLIC ACID [Suspect]
     Active Substance: MYCOPHENOLIC ACID
     Indication: Lung transplant
     Dosage: FREQUENCY : TWICE A DAY;?
     Route: 048
     Dates: start: 20240606, end: 20250226
  2. EVEROLIMUS [Suspect]
     Active Substance: EVEROLIMUS
  3. PREVYMIS [Concomitant]
     Active Substance: LETERMOVIR
  4. TOBRAMYCIN [Concomitant]
     Active Substance: TOBRAMYCIN
  5. CYCLOSPORINE [Concomitant]
     Active Substance: CYCLOSPORINE
  6. GABAPENTIN [Concomitant]
     Active Substance: GABAPENTIN
  7. ALBUTEROL [Concomitant]
     Active Substance: ALBUTEROL
  8. AZITHROMYCIN [Concomitant]
     Active Substance: AZITHROMYCIN
  9. POSACONAZOLE [Concomitant]
     Active Substance: POSACONAZOLE
  10. PREDNISONE [Concomitant]
     Active Substance: PREDNISONE
  11. TAMSULOSIN [Concomitant]
     Active Substance: TAMSULOSIN
  12. BACTRIM [Concomitant]
     Active Substance: SULFAMETHOXAZOLE\TRIMETHOPRIM

REACTIONS (1)
  - Pulmonary oedema [None]

NARRATIVE: CASE EVENT DATE: 20250226
